FAERS Safety Report 8679247 (Version 2)
Quarter: 2012Q4

REPORT INFORMATION
  Report Type: 
  Country: US (occurrence: US)
  Receive Date: 20120724
  Receipt Date: 20120910
  Transmission Date: 20130627
  Serious: No
  Sender: FDA-Public Use
  Company Number: US-JNJFOC-20120705975

PATIENT
  Age: 55 Year
  Sex: Female
  Weight: 52.16 kg

DRUGS (1)
  1. DURAGESIC [Suspect]
     Indication: PRODUCT USED FOR UNKNOWN INDICATION
     Route: 062

REACTIONS (2)
  - Wrong technique in drug usage process [Recovered/Resolved]
  - Application site reaction [Unknown]
